FAERS Safety Report 8545086-8 (Version None)
Quarter: 2012Q3

REPORT INFORMATION
  Report Type: 
  Country: None (occurrence: None)
  Receive Date: 20120727
  Receipt Date: 20120719
  Transmission Date: 20120928
  Serious: Yes (Hospitalization, Other)
  Sender: FDA-Public Use
  Company Number: JP-VERTEX PHARMACEUTICALS INC.-AE-2012-005288

PATIENT
  Age: 69 Year
  Sex: Male

DRUGS (12)
  1. TELAVIC (TELAPREVIR) [Suspect]
     Indication: HEPATITIS C
     Route: 048
     Dates: start: 20120302, end: 20120330
  2. PEG-INTRON [Concomitant]
     Route: 058
     Dates: start: 20120316, end: 20120331
  3. REBETOL [Concomitant]
     Indication: HEPATITIS C
     Route: 048
     Dates: start: 20120302, end: 20120323
  4. REBETOL [Concomitant]
     Route: 048
     Dates: start: 20120327, end: 20120330
  5. ASPIRIN [Concomitant]
     Indication: ARRHYTHMIA
     Route: 048
     Dates: start: 20101225
  6. BISOPROLOL FUMARATE [Concomitant]
     Indication: ARRHYTHMIA
     Route: 048
     Dates: start: 20100814
  7. SUNRYTHM [Concomitant]
     Indication: ARRHYTHMIA
     Route: 048
     Dates: start: 20110917
  8. NORVASC [Concomitant]
     Indication: HYPERTENSION
     Route: 048
     Dates: start: 20120114, end: 20120330
  9. PEG-INTRON [Concomitant]
     Indication: HEPATITIS C
     Route: 058
     Dates: start: 20120302, end: 20120309
  10. REBETOL [Concomitant]
     Route: 048
     Dates: start: 20120324, end: 20120326
  11. FEBURIC [Concomitant]
     Indication: ADVERSE EVENT
     Route: 048
     Dates: start: 20120313, end: 20120330
  12. CANDESARTAN CILEXETIL [Concomitant]
     Route: 048
     Dates: start: 20100731, end: 20120310

REACTIONS (3)
  - ACUTE RESPIRATORY DISTRESS SYNDROME [None]
  - HAEMOGLOBIN DECREASED [None]
  - PNEUMONIA [None]
